FAERS Safety Report 7319539-4 (Version None)
Quarter: 2011Q1

REPORT INFORMATION
  Report Type: 
  Country: None (occurrence: None)
  Receive Date: 20110228
  Receipt Date: 20100507
  Transmission Date: 20110831
  Serious: No
  Sender: FDA-Public Use
  Company Number: A0858690A

PATIENT
  Age: 46 Year
  Sex: Female

DRUGS (5)
  1. LEVOXYL [Concomitant]
  2. VITAMIN D [Concomitant]
  3. LAMICTAL [Suspect]
     Indication: MOOD SWINGS
     Route: 048
     Dates: start: 20100505
  4. BUPROPION [Concomitant]
  5. ASPIRIN [Concomitant]

REACTIONS (2)
  - STOMATITIS [None]
  - TONGUE EXFOLIATION [None]
